FAERS Safety Report 24461819 (Version 1)
Quarter: 2024Q4

REPORT INFORMATION
  Report Type: Spontaneous
  Country: US (occurrence: US)
  Receive Date: 20241018
  Receipt Date: 20241018
  Transmission Date: 20250115
  Serious: Yes (Hospitalization, Other)
  Sender: LUPIN
  Company Number: US-LUPIN PHARMACEUTICALS INC.-2024-10087

PATIENT
  Age: 43 Year
  Sex: Male

DRUGS (10)
  1. SULFAMETHOXAZOLE AND TRIMETHOPRIM [Suspect]
     Active Substance: SULFAMETHOXAZOLE\TRIMETHOPRIM
     Indication: Campylobacter infection
     Dosage: UNK UNK, BID
     Route: 065
     Dates: start: 202206
  2. SULFAMETHOXAZOLE AND TRIMETHOPRIM [Suspect]
     Active Substance: SULFAMETHOXAZOLE\TRIMETHOPRIM
     Indication: Bacteraemia
  3. DOXYCYCLINE [Suspect]
     Active Substance: DOXYCYCLINE
     Indication: Campylobacter infection
     Dosage: UNK
     Route: 065
     Dates: start: 202403
  4. DOXYCYCLINE [Suspect]
     Active Substance: DOXYCYCLINE
     Indication: Bacteraemia
  5. PREDNISONE [Suspect]
     Active Substance: PREDNISONE
     Indication: Bruton^s agammaglobulinaemia
     Dosage: 1 MILLIGRAM, QD
     Route: 065
  6. PREDNISONE [Suspect]
     Active Substance: PREDNISONE
     Indication: Inflammatory bowel disease
     Dosage: UNK (GRADUAL REDUCTION IN HIS CHRONIC PREDNISONE DOSAGE)
     Route: 065
  7. Immunoglobulin [Concomitant]
     Indication: Bruton^s agammaglobulinaemia
     Dosage: UNK
     Route: 042
  8. Immunoglobulin [Concomitant]
     Indication: Inflammatory bowel disease
  9. VEDOLIZUMAB [Concomitant]
     Active Substance: VEDOLIZUMAB
     Indication: Bruton^s agammaglobulinaemia
     Dosage: UNK
     Route: 065
  10. VEDOLIZUMAB [Concomitant]
     Active Substance: VEDOLIZUMAB
     Indication: Inflammatory bowel disease

REACTIONS (7)
  - Bacteraemia [Recovered/Resolved]
  - Campylobacter infection [Recovered/Resolved]
  - Infection [Recovered/Resolved]
  - Abdominal discomfort [Unknown]
  - Photosensitivity reaction [Unknown]
  - Treatment noncompliance [Unknown]
  - Off label use [Unknown]
